FAERS Safety Report 4427985-1 (Version None)
Quarter: 2004Q3

REPORT INFORMATION
  Report Type: 
  Country: None (occurrence: None)
  Receive Date: 20040813
  Receipt Date: 20040804
  Transmission Date: 20050211
  Serious: Yes (Other)
  Sender: FDA-Public Use
  Company Number: 2004226978US

PATIENT
  Age: 65 Year
  Sex: Female

DRUGS (2)
  1. PROVERA [Suspect]
     Dates: start: 19850905, end: 19900702
  2. PREMARIN [Suspect]
     Dates: start: 19850905, end: 19900702

REACTIONS (2)
  - BREAST CANCER FEMALE [None]
  - PHLEBITIS SUPERFICIAL [None]
